FAERS Safety Report 6382314-1 (Version None)
Quarter: 2009Q3

REPORT INFORMATION
  Report Type: 
  Country: None (occurrence: None)
  Receive Date: 20090930
  Receipt Date: 20090922
  Transmission Date: 20100115
  Serious: Yes (Other)
  Sender: FDA-Public Use
  Company Number: US-ALEXION-A200900775

PATIENT
  Sex: Female

DRUGS (2)
  1. SOLIRIS [Suspect]
     Indication: PAROXYSMAL NOCTURNAL HAEMOGLOBINURIA
     Dosage: 600 MG, X4 WEEKS
     Route: 042
     Dates: start: 20070516, end: 20070601
  2. SOLIRIS [Suspect]
     Dosage: 900 MG, EVERY TWO WEEKS
     Route: 042
     Dates: start: 20070613

REACTIONS (1)
  - MENISCUS LESION [None]
